FAERS Safety Report 9967320 (Version 2)
Quarter: 2014Q1

REPORT INFORMATION
  Report Type: Report from Study
  Country: US (occurrence: US)
  Receive Date: 20140305
  Receipt Date: 20140305
  Transmission Date: 20141002
  Serious: No
  Sender: FDA-Public Use
  Company Number: US-ABBVIE-13P-163-1121492-00

PATIENT
  Age: 35 Year
  Sex: Male
  Weight: 74.91 kg

DRUGS (6)
  1. HUMIRA [Suspect]
     Indication: CROHN^S DISEASE
     Route: 058
     Dates: start: 201304, end: 201308
  2. HUMIRA [Suspect]
     Dates: start: 201308
  3. NEURONTIN [Concomitant]
     Indication: PHANTOM PAIN
  4. FENTANYL [Concomitant]
     Indication: PHANTOM PAIN
  5. WARFARIN [Concomitant]
     Indication: ANTIPHOSPHOLIPID SYNDROME
  6. WELLBUTRIN [Concomitant]
     Indication: PRODUCT USED FOR UNKNOWN INDICATION

REACTIONS (3)
  - Crohn^s disease [Recovering/Resolving]
  - Drug ineffective [Recovered/Resolved]
  - Crohn^s disease [Unknown]
